FAERS Safety Report 22611221 (Version 2)
Quarter: 2023Q2

REPORT INFORMATION
  Report Type: Report from Study
  Country: CN (occurrence: CN)
  Receive Date: 20230616
  Receipt Date: 20230629
  Transmission Date: 20230722
  Serious: Yes (Hospitalization)
  Sender: FDA-Public Use
  Company Number: CN-OVERLANDADCT-OAB-2023-000026

PATIENT
  Age: 27 Year
  Sex: Male
  Weight: 48 kg

DRUGS (7)
  1. LONCASTUXIMAB TESIRINE [Suspect]
     Active Substance: LONCASTUXIMAB TESIRINE
     Indication: Diffuse large B-cell lymphoma refractory
     Dosage: UNK UNK, Q3WK
     Route: 042
     Dates: start: 20211224, end: 20211224
  2. LONCASTUXIMAB TESIRINE [Suspect]
     Active Substance: LONCASTUXIMAB TESIRINE
     Dosage: 75 MICROGRAM/KILOGRAM, Q3WK
     Route: 042
     Dates: start: 20230329, end: 20230329
  3. URSODIOL [Concomitant]
     Active Substance: URSODIOL
     Indication: Hepatobiliary disorder prophylaxis
     Dosage: 250 MILLIGRAM, QD
     Route: 048
     Dates: start: 20230309, end: 20230526
  4. URSODIOL [Concomitant]
     Active Substance: URSODIOL
     Indication: Gamma-glutamyltransferase increased
  5. FENOFIBRATE [Concomitant]
     Active Substance: FENOFIBRATE
     Indication: Blood triglycerides decreased
     Dosage: 0.4 GRAM, BID
     Route: 048
     Dates: start: 20230419, end: 20230526
  6. PHOSPHOLIPID [Concomitant]
     Active Substance: PHOSPHOLIPID
     Indication: Hepatobiliary disorder prophylaxis
     Dosage: 456 MILLIGRAM, BID
     Route: 048
     Dates: start: 20230419, end: 20230526
  7. HERBALS\HOMEOPATHICS [Concomitant]
     Active Substance: HERBALS\HOMEOPATHICS
     Indication: Hepatobiliary disorder prophylaxis
     Dosage: 0.6 GRAM, BID
     Route: 048
     Dates: start: 20230419, end: 20230526

REACTIONS (1)
  - Hepatic function abnormal [Recovered/Resolved]

NARRATIVE: CASE EVENT DATE: 20230526
